FAERS Safety Report 6908177-0 (Version None)
Quarter: 2010Q3

REPORT INFORMATION
  Report Type: 
  Country: None (occurrence: None)
  Receive Date: 20100708
  Receipt Date: 20090227
  Transmission Date: 20110219
  Serious: Yes (Other)
  Sender: FDA-Public Use
  Company Number: 2009153006

PATIENT
  Age: 48 Year
  Sex: Male
  Weight: 76.2 kg

DRUGS (8)
  1. CHANTIX [Suspect]
     Dates: start: 20080625, end: 20090107
  2. TRAZODONE HCL [Concomitant]
  3. ZOLOFT [Concomitant]
  4. NORVIR [Concomitant]
  5. NEURONTIN [Concomitant]
  6. VICODIN [Concomitant]
  7. MIRTAZAPINE [Concomitant]
  8. ALBUTEROL [Concomitant]

REACTIONS (3)
  - FEELING ABNORMAL [None]
  - NIGHTMARE [None]
  - SUICIDAL IDEATION [None]
